FAERS Safety Report 8576002-0 (Version None)
Quarter: 2012Q3

REPORT INFORMATION
  Report Type: 
  Country: None (occurrence: None)
  Receive Date: 20120807
  Receipt Date: 20120727
  Transmission Date: 20120928
  Serious: Yes (Hospitalization)
  Sender: FDA-Public Use
  Company Number: GB-AMGEN-GBRNI2012047501

PATIENT
  Age: 64 Year
  Sex: Male
  Weight: 84.3 kg

DRUGS (13)
  1. ASPIRIN [Concomitant]
     Dosage: 75 MG, UNK
     Dates: start: 20100629, end: 20120625
  2. NIACIN [Concomitant]
     Dosage: UNK
     Dates: start: 20100629
  3. MULTI-VITAMIN [Concomitant]
  4. PROPAVAN [Concomitant]
     Dosage: 75 MG, UNK
     Dates: start: 20100625, end: 20120629
  5. ASCORBIC ACID [Concomitant]
     Dosage: 100 MG, UNK
     Dates: start: 20100629
  6. DIPROBASE [Concomitant]
  7. DARBEPOETIN ALFA [Suspect]
     Indication: NEPHROGENIC ANAEMIA
     Dosage: UNK
     Route: 058
     Dates: start: 20111229
  8. ALFACALCIDOL [Concomitant]
     Dosage: 1 MUG, UNK
     Dates: start: 20100629, end: 20120221
  9. FOLIC ACID [Concomitant]
     Dosage: 5 MG, UNK
     Dates: start: 20100629
  10. BISOPROLOL FUMARATE [Concomitant]
     Dosage: 10 MG, UNK
     Dates: start: 20101201
  11. NITROGLYCERIN [Concomitant]
  12. PAREGORIC [Concomitant]
     Dosage: 4 MG, UNK
     Dates: start: 20100823
  13. PERINDOPRIL ERBUMINE [Concomitant]
     Dosage: 4 MG, UNK
     Dates: start: 20100823

REACTIONS (2)
  - ARTERIOVENOUS FISTULA SITE INFECTION [None]
  - STAPHYLOCOCCAL BACTERAEMIA [None]
